FAERS Safety Report 20611236 (Version 2)
Quarter: 2022Q3

REPORT INFORMATION
  Report Type: Spontaneous
  Country: JP (occurrence: JP)
  Receive Date: 20220318
  Receipt Date: 20220805
  Transmission Date: 20221027
  Serious: Yes (Other)
  Sender: FDA-Public Use
  Company Number: JP-ELI_LILLY_AND_COMPANY-JP202203007415

PATIENT
  Age: 65 Year
  Sex: Male

DRUGS (1)
  1. NECITUMUMAB [Suspect]
     Active Substance: NECITUMUMAB
     Indication: Squamous cell carcinoma of lung
     Dosage: UNK
     Route: 065

REACTIONS (6)
  - Hypomagnesaemia [Unknown]
  - Malignant neoplasm progression [Unknown]
  - Rash [Unknown]
  - Decreased appetite [Unknown]
  - Nausea [Unknown]
  - Vomiting [Unknown]
